FAERS Safety Report 25178403 (Version 1)
Quarter: 2025Q2

REPORT INFORMATION
  Report Type: Spontaneous
  Country: US (occurrence: US)
  Receive Date: 20250409
  Receipt Date: 20250409
  Transmission Date: 20250717
  Serious: No
  Sender: NOBELPHARMA
  Company Number: US-Nobelpharma America, LLC-NPA-2025-00491

PATIENT
  Sex: Male

DRUGS (1)
  1. HYFTOR [Suspect]
     Active Substance: SIROLIMUS
     Indication: Tuberous sclerosis complex
     Dosage: APPLY 400 MG TOPICALLY TO FACIAL ANGIOFIBROMA ASSOCIATED WITH TUBEROUS SCLEROSIS TWICE DAILY
     Route: 061
     Dates: start: 20250225

REACTIONS (2)
  - Dry skin [Not Recovered/Not Resolved]
  - Product dose omission issue [Unknown]
